FAERS Safety Report 24531585 (Version 1)
Quarter: 2024Q4

REPORT INFORMATION
  Report Type: Report from Study
  Country: CA (occurrence: CA)
  Receive Date: 20241022
  Receipt Date: 20241022
  Transmission Date: 20250114
  Serious: No
  Sender: ROCHE
  Company Number: CA-ROCHE-3542473

PATIENT
  Sex: Female

DRUGS (3)
  1. PULMOZYME [Suspect]
     Active Substance: DORNASE ALFA
     Indication: Cystic fibrosis
     Dosage: DRUG DOSE FIRST ADMINISTERED IS UNKNOWN MORE DOSAGE INFO IS DOSING DETAILS WERE NOT?PROVIDED
     Route: 055
     Dates: start: 20000712
  2. SODIUM CHLORIDE [Concomitant]
     Active Substance: SODIUM CHLORIDE
  3. VENTOLIN [Concomitant]
     Active Substance: ALBUTEROL SULFATE

REACTIONS (6)
  - Decreased bronchial secretion [Unknown]
  - Cystic fibrosis [Unknown]
  - Anxiety [Unknown]
  - Fatigue [Unknown]
  - Flatulence [Unknown]
  - Loss of personal independence in daily activities [Unknown]
